FAERS Safety Report 9626161 (Version 1)
Quarter: 2013Q4

REPORT INFORMATION
  Report Type: Spontaneous
  Country: CN (occurrence: CN)
  Receive Date: 20131016
  Receipt Date: 20131016
  Transmission Date: 20140711
  Serious: Yes (Other)
  Sender: FDA-Public Use
  Company Number: CN-ABBVIE-13P-035-1158048-00

PATIENT
  Age: 41 Year
  Sex: Male

DRUGS (2)
  1. DEPAKINE CHRONO [Suspect]
     Indication: EPILEPSY
     Dosage: EXTENDED RELEASE
     Route: 048
     Dates: start: 201303
  2. DEPAKINE CHRONO [Suspect]
     Dosage: EXTENDED RELEASE
     Route: 048

REACTIONS (5)
  - Loss of consciousness [Unknown]
  - Musculoskeletal stiffness [Unknown]
  - Foaming at mouth [Unknown]
  - Epilepsy [Recovered/Resolved]
  - Palpitations [Unknown]
